FAERS Safety Report 23146939 (Version 2)
Quarter: 2024Q2

REPORT INFORMATION
  Report Type: Spontaneous
  Country: CA (occurrence: CA)
  Receive Date: 20231106
  Receipt Date: 20240507
  Transmission Date: 20240715
  Serious: Yes (Hospitalization)
  Sender: FDA-Public Use
  Company Number: CA-JNJFOC-20231076811

PATIENT
  Age: 34 Year
  Sex: Female

DRUGS (2)
  1. IBUPROFEN [Suspect]
     Active Substance: IBUPROFEN
     Indication: Product used for unknown indication
     Route: 065
  2. TORADOL [Suspect]
     Active Substance: KETOROLAC TROMETHAMINE
     Indication: Product used for unknown indication
     Route: 065

REACTIONS (13)
  - Chills [Unknown]
  - Dyspnoea [Unknown]
  - Gait disturbance [Unknown]
  - Limbal swelling [Unknown]
  - Pyrexia [Unknown]
  - Respiratory tract congestion [Unknown]
  - Pyrexia [Unknown]
  - Dyspnoea [Unknown]
  - Gait disturbance [Unknown]
  - Dyspnoea [Unknown]
  - Urticaria [Unknown]
  - Hypersensitivity [Unknown]
  - Angioedema [Unknown]

NARRATIVE: CASE EVENT DATE: 20230501
